FAERS Safety Report 12190709 (Version 2)
Quarter: 2016Q1

REPORT INFORMATION
  Report Type: Spontaneous
  Country: JP (occurrence: JP)
  Receive Date: 20160318
  Receipt Date: 20160330
  Transmission Date: 20160526
  Serious: Yes (Hospitalization, Disabling, Other)
  Sender: FDA-Public Use
  Company Number: JP-NOVOPROD-483244

PATIENT
  Age: 31 Year
  Sex: Male
  Weight: 97 kg

DRUGS (12)
  1. NORDITROPIN [Suspect]
     Active Substance: SOMATROPIN
     Indication: GROWTH HORMONE DEFICIENCY
     Dosage: 0.2 MG, QD
     Route: 058
     Dates: start: 20150907, end: 20150916
  2. CABASER [Suspect]
     Active Substance: CABERGOLINE
     Dosage: 1 MG, QD
     Route: 048
     Dates: start: 20150908, end: 20151006
  3. HYDROCORTISONE. [Concomitant]
     Active Substance: HYDROCORTISONE
     Indication: ADRENAL INSUFFICIENCY
     Dosage: UNK
     Route: 048
  4. LEVOTHYROXINE SODIUM. [Concomitant]
     Active Substance: LEVOTHYROXINE SODIUM
     Indication: THYROIDITIS CHRONIC
     Dosage: 25 ?G
     Route: 048
     Dates: start: 20150728, end: 20150907
  5. CABASER [Suspect]
     Active Substance: CABERGOLINE
     Indication: PROLACTINOMA
     Dosage: 0.125 MG, QD
     Route: 048
     Dates: start: 20150325, end: 20150622
  6. CABASER [Suspect]
     Active Substance: CABERGOLINE
     Dosage: 0.5 MG, QD
     Route: 048
     Dates: start: 20151007
  7. LEVOTHYROXINE SODIUM. [Concomitant]
     Active Substance: LEVOTHYROXINE SODIUM
     Dosage: 75 ?G
     Route: 048
     Dates: start: 20151007
  8. NORDITROPIN [Suspect]
     Active Substance: SOMATROPIN
     Dosage: 0.15 MG, QD
     Route: 058
     Dates: start: 20150917, end: 20150927
  9. CABASER [Suspect]
     Active Substance: CABERGOLINE
     Dosage: 0.25 MG, QD
     Route: 048
     Dates: start: 20150623, end: 20150727
  10. LEVOTHYROXINE SODIUM. [Concomitant]
     Active Substance: LEVOTHYROXINE SODIUM
     Dosage: 50 ?G
     Route: 048
     Dates: start: 20150908, end: 20151006
  11. HYDROCORTISONE. [Concomitant]
     Active Substance: HYDROCORTISONE
     Dosage: 10 MG, QD
     Route: 048
     Dates: start: 20150325
  12. CABASER [Suspect]
     Active Substance: CABERGOLINE
     Dosage: 0.5 MG, QD
     Route: 048
     Dates: start: 20150728, end: 20150907

REACTIONS (1)
  - Pituitary haemorrhage [Recovering/Resolving]

NARRATIVE: CASE EVENT DATE: 201509
